FAERS Safety Report 21527448 (Version 4)
Quarter: 2023Q4

REPORT INFORMATION
  Report Type: Spontaneous
  Country: PE (occurrence: PE)
  Receive Date: 20221031
  Receipt Date: 20231228
  Transmission Date: 20240110
  Serious: Yes (Other)
  Sender: FDA-Public Use
  Company Number: PE-PFIZER INC-PV202200090195

PATIENT
  Age: 65 Year
  Sex: Female

DRUGS (2)
  1. ENBREL [Suspect]
     Active Substance: ETANERCEPT
     Indication: Product used for unknown indication
     Dosage: UNK
     Route: 058
  2. PROLIA [Concomitant]
     Active Substance: DENOSUMAB
     Indication: Product used for unknown indication
     Dosage: UNK UNK, Q6MO
     Route: 065

REACTIONS (10)
  - Protein S deficiency [Recovering/Resolving]
  - Rheumatic disorder [Unknown]
  - Inflammation [Unknown]
  - Irritable bowel syndrome [Recovering/Resolving]
  - Underweight [Unknown]
  - Abdominal discomfort [Unknown]
  - Blood calcium decreased [Unknown]
  - Anaemia [Unknown]
  - Feeding disorder [Unknown]
  - Depression [Recovered/Resolved]
